FAERS Safety Report 8966927 (Version 2)
Quarter: 2013Q1

REPORT INFORMATION
  Report Type: Spontaneous
  Country: US (occurrence: US)
  Receive Date: 20121214
  Receipt Date: 20130107
  Transmission Date: 20140127
  Serious: Yes (Other)
  Sender: FDA-Public Use
  Company Number: US-PFIZER INC-2012316080

PATIENT
  Age: 70 Year
  Sex: Female
  Weight: 77.1 kg

DRUGS (6)
  1. ARTHROTEC [Suspect]
     Indication: ARTHRITIS
     Dosage: 200 UG/75 MG, 2X/DAY
     Route: 048
     Dates: start: 201107
  2. TYLENOL [Concomitant]
     Dosage: UNK, 2X/DAY
  3. MORPHINE [Concomitant]
     Dosage: UNK
  4. EVISTA [Concomitant]
     Indication: OSTEOPENIA
     Dosage: UNK
  5. DEPAKOTE [Concomitant]
     Indication: BIPOLAR DISORDER
     Dosage: UNK
  6. CELEXA [Concomitant]
     Indication: BIPOLAR DISORDER
     Dosage: UNK

REACTIONS (6)
  - Urinary tract infection [Unknown]
  - Tooth infection [Unknown]
  - Tooth abscess [Unknown]
  - Weight decreased [Unknown]
  - Tooth fracture [Unknown]
  - Dental caries [Unknown]
